FAERS Safety Report 8104914-0 (Version None)
Quarter: 2012Q1

REPORT INFORMATION
  Report Type: 
  Country: None (occurrence: None)
  Receive Date: 20120201
  Receipt Date: 20120125
  Transmission Date: 20120608
  Serious: Yes (Life-Threatening, Other)
  Sender: FDA-Public Use
  Company Number: US-GLAXOSMITHKLINE-A0961406A

PATIENT
  Age: 60 Year
  Sex: Female
  Weight: 69.1 kg

DRUGS (13)
  1. LOVAZA [Concomitant]
  2. PROTONIX [Concomitant]
  3. CALCIUM [Concomitant]
  4. ZILEUTON [Concomitant]
  5. VITAMIN D [Concomitant]
  6. ASTELIN [Concomitant]
  7. PULMICORT-100 [Concomitant]
  8. LYSINE [Concomitant]
  9. GENTAMICIN [Concomitant]
  10. ADVAIR DISKUS 100/50 [Suspect]
     Indication: ASTHMA
     Dosage: 1PUFF TWICE PER DAY
     Route: 055
     Dates: start: 20050101
  11. QVAR 40 [Concomitant]
  12. NASONEX [Concomitant]
  13. PROBIOTICS [Concomitant]

REACTIONS (5)
  - DIZZINESS [None]
  - BLOOD PRESSURE FLUCTUATION [None]
  - HEART RATE INCREASED [None]
  - CARDIAC FLUTTER [None]
  - ATRIAL FIBRILLATION [None]
